FAERS Safety Report 6142638-X (Version None)
Quarter: 2009Q2

REPORT INFORMATION
  Report Type: 
  Country: None (occurrence: None)
  Receive Date: 20090402
  Receipt Date: 20090402
  Transmission Date: 20091009
  Serious: Yes (Hospitalization)
  Sender: FDA-Public Use
  Company Number: None

PATIENT
  Age: 71 Year
  Sex: Male

DRUGS (3)
  1. QUETIAPINE FUMARATE [Suspect]
     Indication: DELUSION
     Dosage: 200 MG BID PO
     Route: 048
     Dates: start: 20070723, end: 20081022
  2. QUETIAPINE FUMARATE [Suspect]
     Indication: DEMENTIA
     Dosage: 200 MG BID PO
     Route: 048
     Dates: start: 20070723, end: 20081022
  3. LORAZEPAM [Suspect]
     Indication: AGITATION
     Dosage: 2 MG PRN IM
     Route: 030
     Dates: start: 20080324, end: 20081204

REACTIONS (2)
  - DYSPHAGIA [None]
  - PNEUMONIA ASPIRATION [None]
